FAERS Safety Report 21147741 (Version 1)
Quarter: 2022Q3

REPORT INFORMATION
  Report Type: Spontaneous
  Country: US (occurrence: None)
  Receive Date: 20220729
  Receipt Date: 20220729
  Transmission Date: 20221027
  Serious: Yes (Hospitalization, Disabling)
  Sender: FDA-Public Use
  Company Number: None

PATIENT
  Age: 29 Year
  Sex: Female
  Weight: 60.75 kg

DRUGS (6)
  1. HYLENEX RECOMBINANT [Suspect]
     Active Substance: HYALURONIDASE (HUMAN RECOMBINANT)
     Indication: Dermal filler injection
     Dosage: OTHER STRENGTH : 60;?OTHER QUANTITY : 4 INJECTION(S);?
     Dates: start: 20220608, end: 20220608
  2. Gapapentin [Concomitant]
  3. VALIUM [Concomitant]
     Active Substance: DIAZEPAM
  4. Hydroxzine [Concomitant]
  5. VITAMIN C [Concomitant]
     Active Substance: ASCORBIC ACID
  6. COLLAGEN [Concomitant]
     Active Substance: COLLAGEN

REACTIONS (10)
  - Periorbital swelling [None]
  - Skin burning sensation [None]
  - Ocular discomfort [None]
  - Skin disorder [None]
  - Dry eye [None]
  - Lid sulcus deepened [None]
  - Pain in jaw [None]
  - Panic attack [None]
  - Insomnia [None]
  - Infection [None]

NARRATIVE: CASE EVENT DATE: 20220608
